FAERS Safety Report 7955132-8 (Version None)
Quarter: 2011Q4

REPORT INFORMATION
  Report Type: 
  Country: None (occurrence: None)
  Receive Date: 20111202
  Receipt Date: 20111123
  Transmission Date: 20120403
  Serious: Yes (Other)
  Sender: FDA-Public Use
  Company Number: CA-JNJFOC-20111110192

PATIENT

DRUGS (1)
  1. REMICADE [Suspect]
     Indication: GASTROINTESTINAL DISORDER
     Route: 042
     Dates: start: 20111101

REACTIONS (2)
  - ANTI-ERYTHROCYTE ANTIBODY [None]
  - TRANSFUSION [None]
